FAERS Safety Report 4609886-9 (Version None)
Quarter: 2005Q1

REPORT INFORMATION
  Report Type: 
  Country: None (occurrence: None)
  Receive Date: 20050314
  Receipt Date: 20050228
  Transmission Date: 20050727
  Serious: Yes (Hospitalization)
  Sender: FDA-Public Use
  Company Number: 106105ISR

PATIENT
  Age: 62 Year
  Sex: Male

DRUGS (10)
  1. FLUOROURACIL [Suspect]
     Indication: COLON CANCER
     Dosage: 2700 MILLIGRAM; INTRAVENOUS NOS
     Route: 042
     Dates: start: 20031001, end: 20040915
  2. FLUOROURACIL [Suspect]
     Indication: METASTASES TO LIVER
     Dosage: 2700 MILLIGRAM; INTRAVENOUS NOS
     Route: 042
     Dates: start: 20031001, end: 20040915
  3. FOLINIC ACID [Suspect]
     Indication: COLON CANCER
     Dosage: 900 MILLIGRAM; INTRAVENOUS NOS
     Route: 042
     Dates: start: 20031001, end: 20040915
  4. FOLINIC ACID [Suspect]
     Indication: METASTASES TO LIVER
     Dosage: 900 MILLIGRAM; INTRAVENOUS NOS
     Route: 042
     Dates: start: 20031001, end: 20040915
  5. OXALIPLATIN [Suspect]
     Indication: COLON CANCER
     Dosage: 110 MILLIGRAM; INTRAVENOUS NOS
     Route: 042
     Dates: start: 20031001, end: 20040915
  6. OXALIPLATIN [Suspect]
     Indication: METASTASES TO LIVER
     Dosage: 110 MILLIGRAM; INTRAVENOUS NOS
     Route: 042
     Dates: start: 20031001, end: 20040915
  7. DEXAMETHASONE [Concomitant]
  8. ALIZAPRIDE HYDROCHLORIDE [Concomitant]
  9. GRANISETRON  HCL [Concomitant]
  10. PANTOPRAZOLE SODIUM [Concomitant]

REACTIONS (2)
  - PYREXIA [None]
  - TONSILLITIS [None]
